FAERS Safety Report 10894100 (Version 1)
Quarter: 2015Q1

REPORT INFORMATION
  Report Type: Report from Study
  Country: RO (occurrence: RO)
  Receive Date: 20150306
  Receipt Date: 20150306
  Transmission Date: 20150721
  Serious: Yes (Hospitalization)
  Sender: FDA-Public Use
  Company Number: RO-ABBVIE-15P-135-1355512-00

PATIENT
  Age: 67 Year
  Sex: Male

DRUGS (5)
  1. OMNIC TOCAS [Concomitant]
     Indication: PROSTATIC ADENOMA
     Route: 048
  2. LEPONEX [Concomitant]
     Active Substance: CLOZAPINE
     Indication: SLEEP DISORDER
     Dosage: 1/4 TABLET PER DAY
     Route: 048
  3. MADOPAR [Concomitant]
     Active Substance: BENSERAZIDE HYDROCHLORIDE\LEVODOPA
     Indication: PARKINSON^S DISEASE
     Dosage: EVENING AFTER THE PUMP IS STOPPED
     Route: 048
  4. DUODOPA [Suspect]
     Active Substance: CARBIDOPA\LEVODOPA
     Indication: PARKINSON^S DISEASE
     Dosage: MD= 3.5 ML; CR=3.6 ML/H; ED= 1.2 ML.
     Route: 050
     Dates: start: 20140717
  5. AVODART [Concomitant]
     Active Substance: DUTASTERIDE
     Indication: PROSTATIC ADENOMA
     Route: 048

REACTIONS (6)
  - Respiratory tract infection viral [Recovering/Resolving]
  - Granuloma [Recovered/Resolved]
  - Catheter site discharge [Unknown]
  - Stoma site erythema [Unknown]
  - Catheter site oedema [Unknown]
  - Stoma site haemorrhage [Unknown]

NARRATIVE: CASE EVENT DATE: 20150226
